FAERS Safety Report 8037749-8 (Version None)
Quarter: 2012Q1

REPORT INFORMATION
  Report Type: 
  Country: None (occurrence: None)
  Receive Date: 20120111
  Receipt Date: 20120106
  Transmission Date: 20120608
  Serious: Yes (Hospitalization, Other)
  Sender: FDA-Public Use
  Company Number: US-ABBOTT-12P-163-0890705-00

PATIENT
  Sex: Female
  Weight: 49.486 kg

DRUGS (2)
  1. LUPRON DEPOT [Suspect]
     Indication: ENDOMETRIOSIS
  2. LUPRON DEPOT [Suspect]
     Dates: start: 20111018

REACTIONS (16)
  - PYELONEPHRITIS CHRONIC [None]
  - OVARIAN RUPTURE [None]
  - VISION BLURRED [None]
  - CARDIAC DISORDER [None]
  - MIGRAINE [None]
  - HEART RATE INCREASED [None]
  - VOMITING [None]
  - WEIGHT DECREASED [None]
  - FATIGUE [None]
  - HYPERSOMNIA [None]
  - TACHYARRHYTHMIA [None]
  - DEPRESSION [None]
  - SLEEP DISORDER [None]
  - PAIN [None]
  - FLUID RETENTION [None]
  - BLOOD PRESSURE INCREASED [None]
